FAERS Safety Report 4703561-8 (Version None)
Quarter: 2005Q2

REPORT INFORMATION
  Report Type: 
  Country: None (occurrence: None)
  Receive Date: 20050630
  Receipt Date: 20050621
  Transmission Date: 20051028
  Serious: Yes (Other)
  Sender: FDA-Public Use
  Company Number: US-JNJFOC-20050606042

PATIENT
  Age: 13 Year
  Sex: Male

DRUGS (4)
  1. KETOCONAZOLE [Suspect]
     Route: 049
  2. KETOCONAZOLE [Suspect]
     Indication: DRUG USE FOR UNKNOWN INDICATION
     Route: 049
  3. CYCLOSPORINE [Suspect]
  4. VORICONAZOLE [Concomitant]
     Route: 042

REACTIONS (2)
  - DRUG ADMINISTRATION ERROR [None]
  - RENAL FAILURE [None]
